FAERS Safety Report 18181564 (Version 1)
Quarter: 2020Q3

REPORT INFORMATION
  Report Type: Spontaneous
  Country: BE (occurrence: BE)
  Receive Date: 20200821
  Receipt Date: 20200821
  Transmission Date: 20201103
  Serious: Yes (Other)
  Sender: FDA-Public Use
  Company Number: BE-SA-2020SA216567

PATIENT

DRUGS (2)
  1. ELOXATIN [Suspect]
     Active Substance: OXALIPLATIN
     Indication: COLON CANCER METASTATIC
  2. ELOXATIN [Suspect]
     Active Substance: OXALIPLATIN
     Indication: CHEMOTHERAPY

REACTIONS (6)
  - Eye pain [Recovered/Resolved]
  - Vision blurred [Recovered/Resolved]
  - Choroidal effusion [Recovered/Resolved]
  - Retinal detachment [Recovered/Resolved]
  - Eye swelling [Recovered/Resolved]
  - Hypermetropia [Recovered/Resolved]
